FAERS Safety Report 12089536 (Version 1)
Quarter: 2016Q1

REPORT INFORMATION
  Report Type: Spontaneous
  Country: CA (occurrence: CA)
  Receive Date: 20160218
  Receipt Date: 20160218
  Transmission Date: 20160526
  Serious: Yes (Other)
  Sender: FDA-Public Use
  Company Number: CA-NOVOPROD-474446

PATIENT
  Age: 54 Year
  Sex: Male
  Weight: 125 kg

DRUGS (1)
  1. NOVORAPID [Suspect]
     Active Substance: INSULIN ASPART
     Indication: PRODUCT USED FOR UNKNOWN INDICATION
     Dosage: 30 U BEFORE FOOD
     Route: 058

REACTIONS (1)
  - Lipodystrophy acquired [Unknown]
